FAERS Safety Report 4302825-X (Version None)
Quarter: 2004Q1

REPORT INFORMATION
  Report Type: 
  Country: None (occurrence: None)
  Receive Date: 20040223
  Receipt Date: 20040223
  Transmission Date: 20041129
  Serious: Yes (Other)
  Sender: FDA-Public Use
  Company Number: None

PATIENT
  Age: 81 Year
  Sex: Female

DRUGS (4)
  1. PRINIVIL [Suspect]
     Indication: HYPERTENSION
     Dosage: 2.5 MG QD ORAL
     Route: 048
     Dates: start: 19980201, end: 20040204
  2. NORVASC [Concomitant]
  3. PAXIL [Concomitant]
  4. DILANTIN [Concomitant]

REACTIONS (1)
  - ANGIONEUROTIC OEDEMA [None]
